FAERS Safety Report 22631290 (Version 2)
Quarter: 2023Q2

REPORT INFORMATION
  Report Type: Spontaneous
  Country: CA (occurrence: CA)
  Receive Date: 20230623
  Receipt Date: 20230623
  Transmission Date: 20230722
  Serious: Yes (Hospitalization, Other)
  Sender: FDA-Public Use
  Company Number: CA-002147023-NVSC2023CA134414

PATIENT
  Sex: Female

DRUGS (4)
  1. DULOXETINE HYDROCHLORIDE [Suspect]
     Active Substance: DULOXETINE HYDROCHLORIDE
     Indication: Foetal exposure during pregnancy
     Dosage: MATERNAL DOSE: 60 MG (1 EVERY 24 HOURS) FOR FIBROMYALGIA
     Route: 064
  2. LEVETIRACETAM [Suspect]
     Active Substance: LEVETIRACETAM
     Indication: Foetal exposure during pregnancy
     Dosage: MATERNAL DOSE: 60 MG/KG FOR DYSKINESIA
     Route: 064
  3. LORAZEPAM [Suspect]
     Active Substance: LORAZEPAM
     Indication: Foetal exposure during pregnancy
     Dosage: MATERNAL DOSE: 0.1 UG/KG FOR DYSKINESIA
     Route: 064
  4. PHENOBARBITAL [Suspect]
     Active Substance: PHENOBARBITAL
     Indication: Foetal exposure during pregnancy
     Dosage: MATERNAL DOSE: 40 MG/KG FOR DYSKINESIA
     Route: 064

REACTIONS (5)
  - Apnoea [Recovered/Resolved]
  - Respiratory failure [Recovered/Resolved]
  - Dyskinesia [Recovered/Resolved]
  - Foetal exposure during pregnancy [Unknown]
  - Product use issue [Recovered/Resolved]
